FAERS Safety Report 5969915-7 (Version None)
Quarter: 2008Q4

REPORT INFORMATION
  Report Type: 
  Country: None (occurrence: None)
  Receive Date: 20081126
  Receipt Date: 20081003
  Transmission Date: 20090506
  Serious: No
  Sender: FDA-Public Use
  Company Number: US-ABBOTT-08P-163-0479576-00

PATIENT
  Sex: Female
  Weight: 70.143 kg

DRUGS (2)
  1. SIMCOR [Suspect]
     Indication: BLOOD TRIGLYCERIDES INCREASED
     Dosage: 500/20 MILLIGRAM
     Route: 048
     Dates: start: 20080922
  2. SIMCOR [Suspect]
     Indication: BLOOD CHOLESTEROL INCREASED

REACTIONS (2)
  - DIARRHOEA [None]
  - NAUSEA [None]
